FAERS Safety Report 4454791-4 (Version None)
Quarter: 2004Q3

REPORT INFORMATION
  Report Type: 
  Country: None (occurrence: None)
  Receive Date: 20040921
  Receipt Date: 20040914
  Transmission Date: 20050211
  Serious: Yes (Hospitalization)
  Sender: FDA-Public Use
  Company Number: IL-MERCK-0409ISR00011

PATIENT
  Sex: Female

DRUGS (2)
  1. ATORVASTATIN CALCIUM [Concomitant]
     Route: 048
  2. ZETIA [Suspect]
     Route: 048

REACTIONS (1)
  - MYOCARDIAL INFARCTION [None]
